FAERS Safety Report 9196659 (Version 5)
Quarter: 2013Q3

REPORT INFORMATION
  Report Type: Spontaneous
  Country: AU (occurrence: AU)
  Receive Date: 20130328
  Receipt Date: 20130822
  Transmission Date: 20140515
  Serious: Yes (Other)
  Sender: FDA-Public Use
  Company Number: AU-AMGEN-AUSSP2013019221

PATIENT
  Age: 67 Year
  Sex: Female
  Weight: 98 kg

DRUGS (8)
  1. ARANESP [Suspect]
     Indication: PRODUCT USED FOR UNKNOWN INDICATION
     Dosage: 40 MUG, UNK
     Route: 065
     Dates: end: 20130206
  2. AVAPRO HCT [Concomitant]
     Dosage: 300/12.5
  3. CARTIA                             /00002701/ [Concomitant]
  4. ENDONE [Concomitant]
  5. KEFLEX                             /00145501/ [Concomitant]
  6. OSTELIN VITAMIN D [Concomitant]
  7. SOMAC [Concomitant]
  8. ZINC [Concomitant]

REACTIONS (8)
  - Basal cell carcinoma [Unknown]
  - Disease progression [Not Recovered/Not Resolved]
  - Deformity [Unknown]
  - Suicidal ideation [Unknown]
  - Blood creatinine increased [Unknown]
  - Inappropriate schedule of drug administration [Unknown]
  - Bacterial infection [Unknown]
  - Malaise [Unknown]
